FAERS Safety Report 13488517 (Version 4)
Quarter: 2017Q4

REPORT INFORMATION
  Report Type: Spontaneous
  Country: US (occurrence: US)
  Receive Date: 20170427
  Receipt Date: 20171106
  Transmission Date: 20180320
  Serious: Yes (Hospitalization, Other)
  Sender: FDA-Public Use
  Company Number: US-AUROBINDO-AUR-APL-2017-33070

PATIENT
  Age: 51 Year
  Sex: Female

DRUGS (3)
  1. MEROPENEM. [Suspect]
     Active Substance: MEROPENEM
     Indication: ARTHRITIS
     Dosage: PERIPHERALLY INSERTED CENTRAL CATHETER
     Route: 042
  2. MEROPENEM. [Suspect]
     Active Substance: MEROPENEM
     Indication: ARTHRITIS BACTERIAL
  3. MEROPENEM. [Suspect]
     Active Substance: MEROPENEM
     Indication: PSEUDOMONAS INFECTION
     Route: 042

REACTIONS (4)
  - Dermatosis [Recovered/Resolved]
  - Skin reaction [Recovered/Resolved]
  - Eosinophilic pneumonia [Recovered/Resolved]
  - Subcorneal pustular dermatosis [Recovered/Resolved]
